FAERS Safety Report 6570602-5 (Version None)
Quarter: 2010Q1

REPORT INFORMATION
  Report Type: 
  Country: None (occurrence: None)
  Receive Date: 20100204
  Receipt Date: 20100125
  Transmission Date: 20100710
  Serious: Yes (Hospitalization)
  Sender: FDA-Public Use
  Company Number: FR-ABBOTT-10P-056-0622259-00

PATIENT
  Age: 56 Year
  Sex: Female

DRUGS (4)
  1. DEPAKINE CHRONO [Suspect]
     Indication: EPILEPSY
     Dosage: 1500MG DAILY
     Route: 048
     Dates: start: 20091021
  2. LAMICTAL [Suspect]
     Indication: EPILEPSY
     Dosage: AT BEDTIME
     Route: 048
     Dates: start: 20091005, end: 20091012
  3. LAMICTAL [Suspect]
     Route: 048
     Dates: start: 20091013, end: 20091020
  4. PHYSIOTENS [Suspect]
     Indication: HYPERTENSION
     Route: 048
     Dates: start: 20090801, end: 20091128

REACTIONS (5)
  - APHTHOUS STOMATITIS [None]
  - LEUKOPENIA [None]
  - LICHENOID KERATOSIS [None]
  - RASH ERYTHEMATOUS [None]
  - RASH MACULO-PAPULAR [None]
